FAERS Safety Report 10049859 (Version 1)
Quarter: 2014Q2

REPORT INFORMATION
  Report Type: Spontaneous
  Country: IN (occurrence: IN)
  Receive Date: 20140401
  Receipt Date: 20140401
  Transmission Date: 20141212
  Serious: Yes (Hospitalization)
  Sender: FDA-Public Use
  Company Number: IN-MYLANLABS-2014S1006780

PATIENT
  Age: 11 Year
  Sex: Male

DRUGS (8)
  1. CICLOSPORIN [Suspect]
     Indication: NEPHROTIC SYNDROME
     Route: 065
  2. ENALAPRIL [Suspect]
     Indication: NEPHROTIC SYNDROME
     Route: 065
  3. ENALAPRIL [Suspect]
     Indication: OFF LABEL USE
     Route: 065
  4. PREDNISOLONE [Concomitant]
     Indication: NEPHROTIC SYNDROME
     Route: 065
  5. PRAZOSIN [Concomitant]
     Indication: HYPERTENSION
     Route: 065
  6. ATENOLOL [Concomitant]
     Indication: HYPERTENSION
     Route: 065
  7. FUROSEMIDE [Concomitant]
     Indication: OEDEMA
     Route: 065
  8. SPIRONOLACTONE [Concomitant]
     Indication: OEDEMA
     Route: 065

REACTIONS (2)
  - Cardiac tamponade [Recovering/Resolving]
  - Nephropathy toxic [Recovering/Resolving]
